FAERS Safety Report 19207069 (Version 1)
Quarter: 2021Q2

REPORT INFORMATION
  Report Type: Spontaneous
  Country: CA (occurrence: CA)
  Receive Date: 20210503
  Receipt Date: 20210503
  Transmission Date: 20210717
  Serious: Yes (Other)
  Sender: FDA-Public Use
  Company Number: CA-SUN PHARMACEUTICAL INDUSTRIES LTD-2021R1-294281

PATIENT
  Age: 63 Year
  Sex: Male

DRUGS (3)
  1. ATAZANAVIR. [Interacting]
     Active Substance: ATAZANAVIR
     Indication: ANTIRETROVIRAL THERAPY
     Dosage: 400 MILLIGRAM, OD
     Route: 065
     Dates: start: 201506
  2. LURASIDONE [Suspect]
     Active Substance: LURASIDONE
     Indication: PRODUCT USED FOR UNKNOWN INDICATION
     Dosage: 40 MILLIGRAM, DAILY
     Route: 065
     Dates: start: 201506
  3. RISPERIDONE. [Suspect]
     Active Substance: RISPERIDONE
     Indication: PRODUCT USED FOR UNKNOWN INDICATION
     Dosage: 1 MG NIGHTLY
     Route: 065
     Dates: start: 2013

REACTIONS (2)
  - Parkinsonian gait [Unknown]
  - Drug interaction [Unknown]
